FAERS Safety Report 25731919 (Version 1)
Quarter: 2025Q3

REPORT INFORMATION
  Report Type: Spontaneous
  Country: US (occurrence: US)
  Receive Date: 20250827
  Receipt Date: 20250827
  Transmission Date: 20251020
  Serious: No
  Sender: GENBIOPRO
  Company Number: US-GENBIOPRO-2025GEN00003

PATIENT
  Age: 22 Year
  Sex: Female

DRUGS (2)
  1. MISOPROSTOL [Suspect]
     Active Substance: MISOPROSTOL
     Indication: Abortion
     Route: 002
     Dates: start: 20250114, end: 20250114
  2. MIFEPRISTONE [Concomitant]
     Active Substance: MIFEPRISTONE
     Route: 048
     Dates: start: 20250113, end: 20250113

REACTIONS (2)
  - Throat irritation [Recovered/Resolved]
  - Pruritus [Recovered/Resolved]

NARRATIVE: CASE EVENT DATE: 20250114
